FAERS Safety Report 4874184-5 (Version None)
Quarter: 2006Q1

REPORT INFORMATION
  Report Type: 
  Country: None (occurrence: None)
  Receive Date: 20060104
  Receipt Date: 20051219
  Transmission Date: 20060701
  Serious: Yes (Hospitalization, Other)
  Sender: FDA-Public Use
  Company Number: 2005170554

PATIENT
  Age: 63 Year
  Sex: Female
  Weight: 136.0791 kg

DRUGS (6)
  1. NEURONTIN [Suspect]
     Indication: DIABETIC NEUROPATHY
     Dates: start: 20030401
  2. LYRICA [Suspect]
     Indication: DIABETIC NEUROPATHY
     Dates: start: 20050101
  3. GEODON [Suspect]
     Indication: AGITATION
     Dosage: 120 MG (60 MG, 2 IN 1 D)
     Dates: start: 20051205
  4. GEODON [Suspect]
     Indication: PSYCHOTIC DISORDER
     Dosage: 120 MG (60 MG, 2 IN 1 D)
     Dates: start: 20051205
  5. INSULIN [Concomitant]
  6. METFORMIN HCL [Concomitant]

REACTIONS (12)
  - ABSCESS LIMB [None]
  - AFFECT LABILITY [None]
  - AGITATION [None]
  - CONFUSIONAL STATE [None]
  - CRYING [None]
  - DRUG INEFFECTIVE [None]
  - NEPHROLITHIASIS [None]
  - PARANOIA [None]
  - PSYCHOTIC DISORDER [None]
  - SCREAMING [None]
  - SEPSIS [None]
  - THINKING ABNORMAL [None]
